FAERS Safety Report 7269344-2 (Version None)
Quarter: 2011Q1

REPORT INFORMATION
  Report Type: 
  Country: None (occurrence: None)
  Receive Date: 20110124
  Receipt Date: 20110107
  Transmission Date: 20110831
  Serious: Yes (Hospitalization, Disabling, Other)
  Sender: FDA-Public Use
  Company Number: DSA_44604_2011

PATIENT
  Sex: Female

DRUGS (5)
  1. ASPIRIN [Concomitant]
  2. RISPERDAL [Suspect]
     Indication: ANXIETY DISORDER
     Dosage: (0.5 MG BID ORAL)
     Route: 048
  3. SEROQUEL [Suspect]
     Indication: ANXIETY DISORDER
     Dosage: (25 MG QD ORAL)
     Route: 048
  4. IBUPROFEN [Suspect]
     Indication: PRODUCT USED FOR UNKNOWN INDICATION
     Dosage: (600 MG PRN ORAL)
     Route: 048
  5. DILZEM (DILZEM - DILTIAZEM HYDROCHLORIDE) 90 MG (NOT SPECIFIED) [Suspect]
     Indication: ESSENTIAL HYPERTENSION
     Dosage: (90 MG BID ORAL) ; (270 MG, 180 MG IN AM, 90 MG IN PM 270 MG DAILY)
     Route: 048
     Dates: start: 20100101, end: 20100815

REACTIONS (14)
  - CONDITION AGGRAVATED [None]
  - BALANCE DISORDER [None]
  - RENAL FAILURE [None]
  - SINUS BRADYCARDIA [None]
  - VENTRICULAR EXTRASYSTOLES [None]
  - AORTIC STENOSIS [None]
  - HYPERTENSION [None]
  - ATAXIA [None]
  - BUNDLE BRANCH BLOCK LEFT [None]
  - DIARRHOEA [None]
  - DRUG INEFFECTIVE [None]
  - INCORRECT DOSE ADMINISTERED [None]
  - CONSTIPATION [None]
  - BUNDLE BRANCH BLOCK RIGHT [None]
